FAERS Safety Report 16956829 (Version 1)
Quarter: 2019Q4

REPORT INFORMATION
  Report Type: Spontaneous
  Country: US (occurrence: US)
  Receive Date: 20191023
  Receipt Date: 20191023
  Transmission Date: 20200122
  Serious: No
  Sender: FDA-Public Use
  Company Number: None

PATIENT
  Age: 63 Year
  Sex: Female
  Weight: 94.5 kg

DRUGS (19)
  1. MORPHABOND ER [Concomitant]
     Active Substance: MORPHINE SULFATE
  2. ZOCOR [Concomitant]
     Active Substance: SIMVASTATIN
  3. VOLTAREN [Concomitant]
     Active Substance: DICLOFENAC SODIUM
  4. ESTRACE [Concomitant]
     Active Substance: ESTRADIOL
  5. ORAL B COMPLEX [Concomitant]
  6. BENADRYL ALLERGY [Concomitant]
     Active Substance: DIPHENHYDRAMINE HYDROCHLORIDE
  7. SOLARAZE [Concomitant]
     Active Substance: DICLOFENAC SODIUM
  8. VENTOLIN HFA [Concomitant]
     Active Substance: ALBUTEROL SULFATE
  9. ESTROGENS-METHYLTEST HS [Concomitant]
  10. NORCO [Concomitant]
     Active Substance: ACETAMINOPHEN\HYDROCODONE BITARTRATE
  11. FLEXERIL [Concomitant]
     Active Substance: CYCLOBENZAPRINE HYDROCHLORIDE
  12. SINGULAIR [Concomitant]
     Active Substance: MONTELUKAST SODIUM
  13. VITAMIN D3 2000 IU [Concomitant]
  14. PROTONIX 40 MG [Concomitant]
  15. PENNSAID [Concomitant]
     Active Substance: DICLOFENAC SODIUM
  16. RETIN-A [Concomitant]
     Active Substance: TRETINOIN
  17. COLACE [Concomitant]
     Active Substance: DOCUSATE SODIUM
  18. SENOKOT [Concomitant]
     Active Substance: SENNOSIDES
  19. LIDOCAINE PATCH 5% [Suspect]
     Active Substance: LIDOCAINE
     Indication: BACK PAIN
     Dosage: ?          QUANTITY:30 PATCH(ES);?
     Route: 061

REACTIONS (5)
  - Product substitution issue [None]
  - Product quality issue [None]
  - Device ineffective [None]
  - Device difficult to use [None]
  - Device adhesion issue [None]

NARRATIVE: CASE EVENT DATE: 20191013
